FAERS Safety Report 24819301 (Version 1)
Quarter: 2025Q1

REPORT INFORMATION
  Report Type: Spontaneous
  Country: US (occurrence: None)
  Receive Date: 20250108
  Receipt Date: 20250108
  Transmission Date: 20250409
  Serious: Yes (Disabling)
  Sender: FDA-CTU
  Company Number: None

PATIENT
  Age: 31 Year
  Sex: Male
  Weight: 92.25 kg

DRUGS (3)
  1. CIPROFLOXACIN [Suspect]
     Active Substance: CIPROFLOXACIN
     Dosage: FREQUENCY : EVERY 12 HOURS;?
     Route: 048
     Dates: start: 20250102, end: 20250105
  2. AMOXICILLIN [Suspect]
     Active Substance: AMOXICILLIN
  3. METRONIDAZOLE [Suspect]
     Active Substance: METRONIDAZOLE

REACTIONS (11)
  - Drug ineffective [None]
  - Arthralgia [None]
  - Musculoskeletal stiffness [None]
  - Abnormal dreams [None]
  - Pain in extremity [None]
  - Burning sensation [None]
  - Paraesthesia [None]
  - Paraesthesia [None]
  - Brain fog [None]
  - Insomnia [None]
  - Memory impairment [None]

NARRATIVE: CASE EVENT DATE: 20250105
